FAERS Safety Report 23625512 (Version 3)
Quarter: 2024Q4

REPORT INFORMATION
  Report Type: Spontaneous
  Country: VN (occurrence: VN)
  Receive Date: 20240313
  Receipt Date: 20241017
  Transmission Date: 20250114
  Serious: No
  Sender: ROCHE
  Company Number: VN-ROCHE-3511589

PATIENT
  Age: 15 Month
  Sex: Male

DRUGS (1)
  1. HEMLIBRA [Suspect]
     Active Substance: EMICIZUMAB-KXWH
     Indication: Haemophilia
     Dosage: 3 MG/KG LOADING DOSE AND MAINTAINANCE DOSE 6 MG/KG
     Route: 065

REACTIONS (4)
  - Contusion [Unknown]
  - Injury [Unknown]
  - Multiple injuries [Unknown]
  - Fall [Unknown]
